FAERS Safety Report 11406720 (Version 1)
Quarter: 2015Q3

REPORT INFORMATION
  Report Type: Spontaneous
  Country: US (occurrence: US)
  Receive Date: 20150821
  Receipt Date: 20150821
  Transmission Date: 20151125
  Serious: No
  Sender: FDA-Public Use
  Company Number: US-PFIZER INC-2015267793

PATIENT
  Age: 50 Year
  Sex: Female

DRUGS (1)
  1. IBRANCE [Suspect]
     Active Substance: PALBOCICLIB
     Indication: RHEUMATOID ARTHRITIS
     Dosage: 125 MG, CYCLIC (EVERY DAY ON DAYS 1-21 FOLLOWED BY 7 DAYS OFF)
     Route: 048

REACTIONS (3)
  - Off label use [Unknown]
  - Bone pain [Unknown]
  - Arthralgia [Unknown]
